FAERS Safety Report 20838678 (Version 2)
Quarter: 2022Q2

REPORT INFORMATION
  Report Type: Spontaneous
  Country: US (occurrence: None)
  Receive Date: 20220517
  Receipt Date: 20220624
  Transmission Date: 20220721
  Serious: No
  Sender: FDA-Public Use
  Company Number: 2022A158779

PATIENT
  Sex: Female
  Weight: 78.5 kg

DRUGS (2)
  1. BYDUREON BCISE [Suspect]
     Active Substance: EXENATIDE
     Indication: Diabetes mellitus
     Route: 058
  2. BYDUREON [Suspect]
     Active Substance: EXENATIDE
     Indication: Diabetes mellitus
     Route: 058

REACTIONS (14)
  - Polyarthritis [Not Recovered/Not Resolved]
  - Stenosis [Unknown]
  - Neuropathy peripheral [Unknown]
  - Speech disorder [Unknown]
  - Gait disturbance [Unknown]
  - Hypoaesthesia [Unknown]
  - Paraesthesia [Unknown]
  - Arthralgia [Unknown]
  - Sensory loss [Unknown]
  - Reflexes abnormal [Unknown]
  - Drug ineffective [Unknown]
  - Product use issue [Unknown]
  - Wrong technique in device usage process [Unknown]
  - Product label confusion [Unknown]
